FAERS Safety Report 9382409 (Version 2)
Quarter: 2013Q3

REPORT INFORMATION
  Report Type: Report from Study
  Country: US (occurrence: US)
  Receive Date: 20130703
  Receipt Date: 20130802
  Transmission Date: 20140515
  Serious: Yes (Hospitalization, Other)
  Sender: FDA-Public Use
  Company Number: US-ABBOTT-13P-163-1110004-00

PATIENT
  Age: 65 Year
  Sex: Female

DRUGS (2)
  1. HUMIRA [Suspect]
     Indication: CROHN^S DISEASE
     Route: 058
     Dates: start: 20130313
  2. HUMIRA [Suspect]
     Indication: COLITIS

REACTIONS (13)
  - Chills [Unknown]
  - Dehydration [Unknown]
  - Sepsis [Unknown]
  - Influenza [Unknown]
  - Nausea [Unknown]
  - Vomiting [Unknown]
  - Pyrexia [Unknown]
  - Diarrhoea [Unknown]
  - Drug ineffective [Unknown]
  - Local swelling [Unknown]
  - Inflammation [Unknown]
  - Fatigue [Unknown]
  - Anaemia [Unknown]
